FAERS Safety Report 8941854 (Version 1)
Quarter: 2012Q4

REPORT INFORMATION
  Report Type: 
  Country: JP (occurrence: JP)
  Receive Date: 20121130
  Receipt Date: 20121130
  Transmission Date: 20130627
  Serious: Yes (Other)
  Sender: FDA-Public Use
  Company Number: JP-SANOFI-AVENTIS-2012SA086522

PATIENT
  Age: 70 Year
  Sex: Male

DRUGS (2)
  1. ALLEGRA [Suspect]
     Indication: DRUG USE FOR UNKNOWN INDICATION
     Route: 048
  2. RIFAMPICIN [Concomitant]
     Dosage: strength: 50 mg capsule
     Route: 048

REACTIONS (2)
  - Alpha 1 foetoprotein increased [Unknown]
  - Protein induced by vitamin K absence or antagonist II increased [Unknown]
